FAERS Safety Report 9057029 (Version 1)
Quarter: 2013Q1

REPORT INFORMATION
  Report Type: Report from Study
  Country: US (occurrence: US)
  Receive Date: 20130131
  Receipt Date: 20130131
  Transmission Date: 20140127
  Serious: No
  Sender: FDA-Public Use
  Company Number: US-ABBOTT-12P-163-0994611-00

PATIENT
  Age: 76 Year
  Sex: Female

DRUGS (10)
  1. HUMIRA [Suspect]
     Indication: CROHN^S DISEASE
     Dates: start: 20120920, end: 20120920
  2. HUMIRA [Suspect]
     Dates: start: 20121004, end: 20121004
  3. HUMIRA [Suspect]
  4. BENICAR [Concomitant]
     Indication: PRODUCT USED FOR UNKNOWN INDICATION
  5. BENICAR [Concomitant]
  6. ONE A DAY VITAMINS [Concomitant]
     Indication: PRODUCT USED FOR UNKNOWN INDICATION
  7. CALTRATE [Concomitant]
     Indication: PRODUCT USED FOR UNKNOWN INDICATION
  8. FISH OIL [Concomitant]
     Indication: PRODUCT USED FOR UNKNOWN INDICATION
  9. B6 [Concomitant]
     Indication: PRODUCT USED FOR UNKNOWN INDICATION
  10. FOLIC ACID [Concomitant]
     Indication: PRODUCT USED FOR UNKNOWN INDICATION

REACTIONS (2)
  - Lymphadenopathy [Not Recovered/Not Resolved]
  - Blood pressure increased [Not Recovered/Not Resolved]
